FAERS Safety Report 7772685-3 (Version None)
Quarter: 2011Q3

REPORT INFORMATION
  Report Type: 
  Country: None (occurrence: None)
  Receive Date: 20110922
  Receipt Date: 20100803
  Transmission Date: 20111222
  Serious: Yes (Hospitalization)
  Sender: FDA-Public Use
  Company Number: US-ASTRAZENECA-2008UW01144

PATIENT
  Age: 32 Year
  Sex: Male
  Weight: 127 kg

DRUGS (23)
  1. SEROQUEL [Suspect]
     Indication: DEPRESSION
     Dosage: 300 MG TO 400 MG
     Route: 048
     Dates: start: 19970301, end: 20080101
  2. SEROQUEL [Suspect]
     Dosage: 300 MG TO 400 MG
     Route: 048
     Dates: start: 19970101, end: 20000101
  3. MOTRIN [Concomitant]
     Route: 048
  4. SEROQUEL [Suspect]
     Dosage: 25 MG - 800 MG
     Route: 048
     Dates: start: 20020908
  5. BENADRYL [Concomitant]
     Route: 048
  6. SEROQUEL [Suspect]
     Dosage: 300 MG TO 400 MG
     Route: 048
     Dates: start: 19970101, end: 20000101
  7. SEROQUEL [Suspect]
     Dosage: 25 MG - 800 MG
     Route: 048
     Dates: start: 20020908
  8. SEROQUEL [Suspect]
     Dosage: 25 MG - 800 MG
     Route: 048
     Dates: start: 20020908
  9. TRAZODONE HYDROCHLORIDE [Concomitant]
     Route: 048
  10. TRIAVIL [Concomitant]
  11. SEROQUEL [Suspect]
     Indication: SCHIZOPHRENIA
     Dosage: 300 MG TO 400 MG
     Route: 048
     Dates: start: 19970301, end: 20080101
  12. SEROQUEL [Suspect]
     Dosage: 300 MG TO 400 MG
     Route: 048
     Dates: start: 19970101, end: 20000101
  13. SEROQUEL [Suspect]
     Dosage: 300 MG TO 400 MG
     Route: 048
     Dates: start: 19970101, end: 20000101
  14. SEROQUEL [Suspect]
     Dosage: 300 MG TO 400 MG
     Route: 048
     Dates: end: 20070101
  15. SEROQUEL [Suspect]
     Dosage: 300 MG TO 400 MG
     Route: 048
     Dates: end: 20070101
  16. SEROQUEL [Suspect]
     Indication: BIPOLAR DISORDER
     Dosage: 300 MG TO 400 MG
     Route: 048
     Dates: start: 19970301, end: 20080101
  17. SEROQUEL [Suspect]
     Dosage: 300 MG TO 400 MG
     Route: 048
     Dates: end: 20070101
  18. NORVASC [Concomitant]
     Route: 048
  19. WELLBUTRIN [Concomitant]
     Route: 048
  20. SEROQUEL [Suspect]
     Indication: ANXIETY
     Dosage: 300 MG TO 400 MG
     Route: 048
     Dates: start: 19970301, end: 20080101
  21. SEROQUEL [Suspect]
     Dosage: 25 MG - 800 MG
     Route: 048
     Dates: start: 20020908
  22. SEROQUEL [Suspect]
     Dosage: 300 MG TO 400 MG
     Route: 048
     Dates: end: 20070101
  23. ABILIFY [Concomitant]
     Dates: start: 20080101, end: 20090101

REACTIONS (4)
  - DIABETIC COMPLICATION [None]
  - COMA [None]
  - OBESITY [None]
  - TYPE 2 DIABETES MELLITUS [None]
